FAERS Safety Report 20907504 (Version 1)
Quarter: 2022Q2

REPORT INFORMATION
  Report Type: Spontaneous
  Country: CH (occurrence: CH)
  Receive Date: 20220602
  Receipt Date: 20220602
  Transmission Date: 20220720
  Serious: Yes (Other)
  Sender: FDA-Public Use
  Company Number: None

PATIENT
  Age: 80 Year
  Sex: Male
  Weight: 58.7 kg

DRUGS (15)
  1. ELIQUIS [Suspect]
     Active Substance: APIXABAN
     Indication: Cerebrovascular accident prophylaxis
     Dosage: ELIQUIS? (APIXABAN) 10 MG /TAG ORALE EINNAHME SEIT UNBEKANNTEM ZEITPUNKT BIS AM 18.01.2022, PAUSI...
     Route: 048
     Dates: end: 20220118
  2. ELIQUIS [Suspect]
     Active Substance: APIXABAN
     Dosage: AB DEM 24.01.2022 ABENDS WURDE DIE THERAPIE MIT ELIQUIS? IN REDUZIERTER DOSIERUNG (2X 2.5 MG/TAG)...
     Route: 048
  3. ENOXAPARIN SODIUM [Concomitant]
     Active Substance: ENOXAPARIN SODIUM
     Indication: Product used for unknown indication
     Dosage: CLEXANE? (ENOXAPARIN) 60 MG AB VOM 21.01.2022 BIS AM 24.02.2022 1-0-1 SUBKUTAN
     Route: 058
     Dates: start: 20220121, end: 20220224
  4. CITALOPRAM HYDROBROMIDE [Concomitant]
     Active Substance: CITALOPRAM HYDROBROMIDE
     Indication: Product used for unknown indication
     Dosage: CITALOPRAM? MEPHA LACTAB 20 MG (CITALOPRAM)	1-0-0
     Route: 048
  5. ALDACTONE [Concomitant]
     Active Substance: SPIRONOLACTONE
     Indication: Product used for unknown indication
     Dosage: ALDACTONE? FILMTABL 25 MG (SPIRONOLACTON) 1-0-0
     Route: 048
  6. METOPROLOL SUCCINATE [Concomitant]
     Active Substance: METOPROLOL SUCCINATE
     Indication: Product used for unknown indication
     Dosage: METOPROLOL MEPHA DEPOTABS? 12.5 MG (METOPROLOL) 1-0-1
     Route: 048
  7. ESOMEPRAZOLE [Concomitant]
     Active Substance: ESOMEPRAZOLE
     Indication: Product used for unknown indication
     Dosage: NEXIUM MUPS? TABL 20 MG (ESOMEPRAZOL) 1-0-0
     Route: 048
  8. TORSEMIDE [Concomitant]
     Active Substance: TORSEMIDE
     Indication: Product used for unknown indication
     Dosage: TORASEMID 10 MG 2-2-0, GESTOPPT W?HREND HOSPITALISATION (26.01.2022), WECHSEL AUF FUROSEMID
     Route: 048
     Dates: end: 20220126
  9. FOLIC ACID [Concomitant]
     Active Substance: FOLIC ACID
     Indication: Product used for unknown indication
     Dosage: ACIDUM FOLICUM STREULI TABL 5 MG (FOLS?URE) 1-0-0
     Route: 048
  10. Transipeg [Concomitant]
     Indication: Product used for unknown indication
     Dosage: TRANSIPEG PLV 1 BTL (MACROGOL, ELEKTROLYTE) 1-0-0
     Route: 048
  11. HALOPERIDOL [Concomitant]
     Active Substance: HALOPERIDOL
     Indication: Product used for unknown indication
     Dosage: HALOPERIDOL IN RESERVE, W?HREND HOSPITALISATION PAUSIERT UND ANSCHLIESSEND NICHT ERNEUT GESTARTET...
     Route: 048
  12. MORPHINE HYDROCHLORIDE [Concomitant]
     Active Substance: MORPHINE HYDROCHLORIDE
     Indication: Product used for unknown indication
     Dosage: MORPHIN HCL STREULI TROPFEN IN RESERVE  ; AS NECESSARY
     Route: 048
  13. SODIUM PICOSULFATE [Concomitant]
     Active Substance: SODIUM PICOSULFATE
     Indication: Product used for unknown indication
     Dosage: LAXOBERON? (NATRIUM PICOSULFAT) IN RESERVE 10 TROPFEN  ; AS NECESSARY
     Route: 048
  14. FUROSEMIDE [Concomitant]
     Active Substance: FUROSEMIDE
     Indication: Product used for unknown indication
     Dosage: FUROSEMID 40 MG I.V. 1-1-1 W?HREND HOSPITALISATION BIS AUF WEITERES, BEI SPITALAUSTRITT SUBKUTAN ...
     Route: 042
  15. FERINJECT [Concomitant]
     Active Substance: FERRIC CARBOXYMALTOSE
     Indication: Product used for unknown indication
     Dosage: FERRINJECT (EISEN III) 500 MG I.V. AM 21.01.22	 ; IN TOTAL
     Route: 042
     Dates: start: 20220121, end: 20220121

REACTIONS (1)
  - Factor Xa activity increased [Recovered/Resolved]

NARRATIVE: CASE EVENT DATE: 20220120
